FAERS Safety Report 5036445-9 (Version None)
Quarter: 2006Q2

REPORT INFORMATION
  Report Type: 
  Country: None (occurrence: None)
  Receive Date: 20060623
  Receipt Date: 20060613
  Transmission Date: 20061013
  Serious: Yes (Other)
  Sender: FDA-Public Use
  Company Number: HQWYE258319JUN06

PATIENT

DRUGS (2)
  1. EFFEXOR XR [Suspect]
     Dosage: 75 MG 1X PER 1 DAY
     Route: 048
  2. QUETIAPINE FUMARATE [Concomitant]

REACTIONS (1)
  - BENIGN INTRACRANIAL HYPERTENSION [None]
